FAERS Safety Report 8775608 (Version 3)
Quarter: 2012Q4

REPORT INFORMATION
  Report Type: Report from Study
  Country: US (occurrence: US)
  Receive Date: 20120909
  Receipt Date: 20120921
  Transmission Date: 20130627
  Serious: Yes (Other)
  Sender: FDA-Public Use
  Company Number: US-ABBOTT-12P-163-0973659-00

PATIENT
  Sex: Male
  Weight: 96.7 kg

DRUGS (6)
  1. NIASPAN (COATED) [Suspect]
     Indication: ARTERIOSCLEROSIS CORONARY ARTERY
     Dosage: At bedtime
     Dates: start: 201011
  2. NIASPAN (COATED) [Suspect]
     Dosage: At bedtime
     Dates: start: 201205
  3. PLAVIX [Concomitant]
     Indication: PRODUCT USED FOR UNKNOWN INDICATION
  4. TOPROL [Concomitant]
     Indication: PRODUCT USED FOR UNKNOWN INDICATION
  5. MULTI PLUS 50 [Concomitant]
     Indication: PRODUCT USED FOR UNKNOWN INDICATION
  6. ASA [Concomitant]
     Indication: PRODUCT USED FOR UNKNOWN INDICATION
     Dosage: 325 mg daily

REACTIONS (3)
  - Chest pain [Recovered/Resolved]
  - Coronary artery occlusion [Not Recovered/Not Resolved]
  - Flushing [Recovering/Resolving]
